FAERS Safety Report 20919661 (Version 1)
Quarter: 2022Q2

REPORT INFORMATION
  Report Type: Spontaneous
  Country: US (occurrence: US)
  Receive Date: 20220606
  Receipt Date: 20220606
  Transmission Date: 20220720
  Serious: No
  Sender: FDA-Public Use
  Company Number: US-PFIZER INC-202200794553

PATIENT
  Sex: Female

DRUGS (3)
  1. ATIVAN [Suspect]
     Active Substance: LORAZEPAM
     Indication: Hypertension
     Dosage: UNK
  2. LENVIMA [Concomitant]
     Active Substance: LENVATINIB
     Dosage: 20 MG, 1X/DAY
     Dates: start: 20220422
  3. LENVIMA [Concomitant]
     Active Substance: LENVATINIB
     Dosage: 10 MG
     Dates: start: 20220520

REACTIONS (3)
  - Fatigue [Unknown]
  - Blood glucose increased [Unknown]
  - Off label use [Unknown]
